FAERS Safety Report 20446581 (Version 1)
Quarter: 2022Q1

REPORT INFORMATION
  Report Type: Spontaneous
  Country: RU (occurrence: None)
  Receive Date: 20220208
  Receipt Date: 20220208
  Transmission Date: 20220424
  Serious: Yes (Hospitalization)
  Sender: FDA-Public Use
  Company Number: RU-ROCHE-3019702

PATIENT
  Age: 2 Year

DRUGS (1)
  1. HEMLIBRA [Suspect]
     Active Substance: EMICIZUMAB-KXWH
     Indication: Factor VIII deficiency
     Route: 065

REACTIONS (5)
  - Palate injury [Unknown]
  - Haemorrhage [Unknown]
  - Anaemia [Unknown]
  - Sluggishness [Unknown]
  - Somnolence [Unknown]
